FAERS Safety Report 4926527-1 (Version None)
Quarter: 2006Q1

REPORT INFORMATION
  Report Type: 
  Country: None (occurrence: None)
  Receive Date: 20060228
  Receipt Date: 20050426
  Transmission Date: 20060701
  Serious: No
  Sender: FDA-Public Use
  Company Number: US-GLAXOSMITHKLINE-A0555820A

PATIENT
  Sex: Female

DRUGS (1)
  1. LAMICTAL [Suspect]
     Indication: BIPOLAR DISORDER
     Dosage: 50MG PER DAY
     Route: 048
     Dates: start: 20050405, end: 20050425

REACTIONS (7)
  - ASTHENIA [None]
  - CHAPPED LIPS [None]
  - DIZZINESS [None]
  - DRUG INEFFECTIVE [None]
  - ORAL PAIN [None]
  - PAIN [None]
  - PYREXIA [None]
